FAERS Safety Report 25893976 (Version 1)
Quarter: 2025Q4

REPORT INFORMATION
  Report Type: Spontaneous
  Country: EU (occurrence: EU)
  Receive Date: 20251008
  Receipt Date: 20251008
  Transmission Date: 20260117
  Serious: Yes (Other)
  Sender: TEVA
  Company Number: None

PATIENT
  Age: 7 Year
  Sex: Male
  Weight: 27.6 kg

DRUGS (3)
  1. AZITHROMYCIN [Suspect]
     Active Substance: AZITHROMYCIN
     Indication: Cystic fibrosis
     Dosage: 250 MG X 3/WEEK, STOP IN JULY AND 2024-08, THEN RESUME IN 2024-09
     Route: 048
     Dates: start: 20230615
  2. KALYDECO [Suspect]
     Active Substance: IVACAFTOR
     Indication: Cystic fibrosis
     Route: 048
     Dates: start: 20231015
  3. ELEXACAFTOR\IVACAFTOR\TEZACAFTOR [Suspect]
     Active Substance: ELEXACAFTOR\IVACAFTOR\TEZACAFTOR
     Indication: Cystic fibrosis
     Dosage: 37.5 MG/25 MG/50 MG
     Route: 048
     Dates: start: 20231015

REACTIONS (2)
  - Neutropenia [Not Recovered/Not Resolved]
  - Neuropsychological symptoms [Not Recovered/Not Resolved]

NARRATIVE: CASE EVENT DATE: 20231127
